FAERS Safety Report 8543077-4 (Version None)
Quarter: 2012Q3

REPORT INFORMATION
  Report Type: 
  Country: None (occurrence: None)
  Receive Date: 20120727
  Receipt Date: 20110609
  Transmission Date: 20120928
  Serious: No
  Sender: FDA-Public Use
  Company Number: US-MYLANLABS-2011S1011903

PATIENT
  Age: 70 Year
  Sex: Male

DRUGS (2)
  1. LEVOTHYROXINE SODIUM [Suspect]
     Indication: THYROIDECTOMY
     Route: 048
     Dates: start: 20110201, end: 20110411
  2. ASPIRIN [Concomitant]

REACTIONS (7)
  - CONFUSIONAL STATE [None]
  - VISUAL IMPAIRMENT [None]
  - MYXOEDEMA [None]
  - BRADYCARDIA [None]
  - BLOOD THYROID STIMULATING HORMONE DECREASED [None]
  - MEMORY IMPAIRMENT [None]
  - WEIGHT INCREASED [None]
